FAERS Safety Report 23268128 (Version 1)
Quarter: 2023Q4

REPORT INFORMATION
  Report Type: Spontaneous
  Country: US (occurrence: US)
  Receive Date: 20231206
  Receipt Date: 20231206
  Transmission Date: 20240109
  Serious: Yes (Other)
  Sender: FDA-Public Use
  Company Number: US-BRAINTREE LABORATORIES, INC.-2023BTE00654

PATIENT
  Age: 63 Year
  Sex: Female
  Weight: 62.132 kg

DRUGS (2)
  1. SUTAB [Suspect]
     Active Substance: MAGNESIUM SULFATE\POTASSIUM CHLORIDE\SODIUM SULFATE
     Indication: Colonoscopy
     Dosage: 1 X 12 TABLETS, 1X
     Route: 048
     Dates: start: 20230910
  2. UNSPECIFIED INGREDIENT [Concomitant]
     Active Substance: UNSPECIFIED INGREDIENT
     Dosage: UNK

REACTIONS (9)
  - Dyspnoea [Recovered/Resolved]
  - Flushing [Recovered/Resolved]
  - Erythema [Recovered/Resolved]
  - Presyncope [Recovered/Resolved]
  - Panic reaction [Recovered/Resolved]
  - Dizziness [Recovered/Resolved]
  - Blood potassium decreased [Recovered/Resolved]
  - Feeling hot [Recovered/Resolved]
  - Blood electrolytes decreased [Recovered/Resolved]

NARRATIVE: CASE EVENT DATE: 20230910
